FAERS Safety Report 8495819 (Version 3)
Quarter: 2014Q1

REPORT INFORMATION
  Report Type: Spontaneous
  Country: BR (occurrence: BR)
  Receive Date: 20120405
  Receipt Date: 20140204
  Transmission Date: 20141002
  Serious: No
  Sender: FDA-Public Use
  Company Number: BR-JNJFOC-20120311256

PATIENT
  Age: 38 Year
  Sex: Male
  Weight: 72 kg

DRUGS (6)
  1. DUROGESIC D-TRANS [Suspect]
     Indication: PAIN IN EXTREMITY
     Route: 062
     Dates: start: 20120316
  2. TOPIRAMATE [Suspect]
     Indication: MOOD ALTERED
     Route: 048
     Dates: start: 2011
  3. BUPROPION [Concomitant]
     Route: 048
     Dates: start: 201110
  4. GABAPENTIN [Concomitant]
     Indication: NEUROPATHY PERIPHERAL
     Route: 048
     Dates: start: 201009
  5. VENLAFAXINE HYDROCHLORIDE [Concomitant]
     Indication: NEUROPATHY PERIPHERAL
     Route: 048
     Dates: start: 201201
  6. OMEPRAZOLE [Concomitant]
     Indication: GASTROINTESTINAL DISORDER THERAPY
     Route: 048
     Dates: start: 201010

REACTIONS (5)
  - Pain in extremity [Unknown]
  - Hypersensitivity [Not Recovered/Not Resolved]
  - Product quality issue [Not Recovered/Not Resolved]
  - Nervousness [Unknown]
  - Wrong technique in drug usage process [Not Recovered/Not Resolved]
